FAERS Safety Report 9691902 (Version 2)
Quarter: 2013Q4

REPORT INFORMATION
  Report Type: Spontaneous
  Country: US (occurrence: US)
  Receive Date: 20131117
  Receipt Date: 20131117
  Transmission Date: 20140711
  Serious: Yes (Hospitalization, Other)
  Sender: FDA-Public Use
  Company Number: US-009507513-1309USA005687

PATIENT
  Sex: Female
  Weight: 44 kg

DRUGS (1)
  1. PEGINTRON [Suspect]
     Indication: HEPATITIS C
     Dosage: 150 MCG/0.5 ML, QW
     Route: 058
     Dates: start: 20130612, end: 20131023

REACTIONS (6)
  - Pneumonia pseudomonal [Recovered/Resolved]
  - Sepsis [Unknown]
  - Drug dose omission [Unknown]
  - Chronic obstructive pulmonary disease [Recovered/Resolved]
  - Malnutrition [Recovered/Resolved]
  - Hyponatraemia [Recovered/Resolved]
